FAERS Safety Report 15750894 (Version 1)
Quarter: 2018Q4

REPORT INFORMATION
  Report Type: Spontaneous
  Country: US (occurrence: US)
  Receive Date: 20181221
  Receipt Date: 20181221
  Transmission Date: 20190205
  Serious: No
  Sender: FDA-Public Use
  Company Number: PHEH2018US053652

PATIENT
  Sex: Female
  Weight: 58.97 kg

DRUGS (1)
  1. AZOPT [Suspect]
     Active Substance: BRINZOLAMIDE
     Dosage: 0.05 ML, BID
     Route: 047
     Dates: start: 20181101, end: 20181103

REACTIONS (1)
  - Eye irritation [Recovering/Resolving]
